FAERS Safety Report 9684850 (Version 2)
Quarter: 2014Q1

REPORT INFORMATION
  Report Type: Spontaneous
  Country: IT (occurrence: IT)
  Receive Date: 20131112
  Receipt Date: 20140115
  Transmission Date: 20141002
  Serious: Yes (Other)
  Sender: FDA-Public Use
  Company Number: IT-TEVA-441948ISR

PATIENT
  Age: 58 Year
  Sex: Female

DRUGS (2)
  1. PAROXETINA CLORIDRATO [Suspect]
     Indication: ANXIETY DISORDER
     Dosage: 20 MILLIGRAM DAILY;
     Route: 048
     Dates: start: 20131025, end: 20131025
  2. EUTIROX 75 MCG [Concomitant]

REACTIONS (3)
  - Blood pressure increased [Recovering/Resolving]
  - Agitation [Recovering/Resolving]
  - Nausea [Recovering/Resolving]
